FAERS Safety Report 16020523 (Version 1)
Quarter: 2019Q1

REPORT INFORMATION
  Report Type: Spontaneous
  Country: US (occurrence: US)
  Receive Date: 20190301
  Receipt Date: 20190301
  Transmission Date: 20190418
  Serious: Yes (Death)
  Sender: FDA-Public Use
  Company Number: US-ABBVIE-19K-163-2685911-00

PATIENT
  Age: 61 Year
  Sex: Female
  Weight: 90.1 kg

DRUGS (1)
  1. MAVYRET [Suspect]
     Active Substance: GLECAPREVIR\PIBRENTASVIR
     Indication: CHRONIC HEPATITIS C
     Dosage: 300/120 MG
     Route: 048
     Dates: start: 20180125, end: 20180326

REACTIONS (5)
  - Acute hepatic failure [Fatal]
  - Acute kidney injury [Fatal]
  - Encephalopathy [Fatal]
  - Shock [Fatal]
  - Abdominal pain [Fatal]
